FAERS Safety Report 9510645 (Version 2)
Quarter: 2013Q4

REPORT INFORMATION
  Report Type: Spontaneous
  Country: NO (occurrence: NO)
  Receive Date: 20130909
  Receipt Date: 20131028
  Transmission Date: 20140711
  Serious: Yes (Other)
  Sender: FDA-Public Use
  Company Number: NO-WATSON-2013-15879

PATIENT
  Age: 60 Year
  Sex: Female

DRUGS (3)
  1. CYCLOSPORINE (UNKNOWN) [Suspect]
     Indication: LUNG TRANSPLANT
     Dosage: UNK
     Route: 065
  2. MYCOPHENOLATE MOFETIL (UNKNOWN) [Suspect]
     Indication: LUNG TRANSPLANT
     Dosage: UNK
     Route: 065
  3. PREDNISOLONE /00016202/ [Suspect]
     Indication: LUNG TRANSPLANT
     Dosage: UNK
     Route: 065

REACTIONS (11)
  - Kaposi^s sarcoma [Recovered/Resolved]
  - Obliterative bronchiolitis [Recovered/Resolved]
  - Abdominal pain [Recovered/Resolved]
  - Anaemia [Recovered/Resolved]
  - Herpes virus infection [Recovered/Resolved]
  - Renal failure [Recovered/Resolved]
  - Pulmonary function test decreased [Recovered/Resolved]
  - Nausea [Recovered/Resolved]
  - Occult blood [Recovered/Resolved]
  - Ulcer [Recovered/Resolved]
  - Vomiting [Recovered/Resolved]
